FAERS Safety Report 5948065-X (Version None)
Quarter: 2008Q4

REPORT INFORMATION
  Report Type: 
  Country: None (occurrence: None)
  Receive Date: 20081111
  Receipt Date: 20081008
  Transmission Date: 20090506
  Serious: No
  Sender: FDA-Public Use
  Company Number: US-BAYER-200835348NA

PATIENT
  Age: 30 Year
  Sex: Female
  Weight: 61 kg

DRUGS (1)
  1. MAGNEVIST [Suspect]
     Indication: VERTIGO
     Dosage: TOTAL DAILY DOSE: 11 ML
     Route: 042
     Dates: start: 20081008, end: 20081008

REACTIONS (2)
  - ERYTHEMA [None]
  - PRURITUS [None]
